FAERS Safety Report 8340314-6 (Version None)
Quarter: 2012Q2

REPORT INFORMATION
  Report Type: 
  Country: None (occurrence: None)
  Receive Date: 20120507
  Receipt Date: 20120507
  Transmission Date: 20120825
  Serious: Yes (Hospitalization)
  Sender: FDA-Public Use
  Company Number: None

PATIENT
  Age: 18 Year
  Sex: Female
  Weight: 77.11 kg

DRUGS (1)
  1. MINOCYCLINE HCL [Suspect]
     Indication: ACNE
     Dosage: |STRENGTH: 100MG|
     Dates: start: 20111215, end: 20120426

REACTIONS (7)
  - DIZZINESS [None]
  - DIPLOPIA [None]
  - NAUSEA [None]
  - HEADACHE [None]
  - BENIGN INTRACRANIAL HYPERTENSION [None]
  - MUSCULOSKELETAL STIFFNESS [None]
  - BLINDNESS [None]
